FAERS Safety Report 9192263 (Version 2)
Quarter: 2013Q2

REPORT INFORMATION
  Report Type: Spontaneous
  Country: US (occurrence: US)
  Receive Date: 20130327
  Receipt Date: 20130419
  Transmission Date: 20140414
  Serious: No
  Sender: FDA-Public Use
  Company Number: US-ELI_LILLY_AND_COMPANY-US201303005784

PATIENT
  Sex: Female
  Weight: 67.12 kg

DRUGS (17)
  1. CYMBALTA [Suspect]
     Indication: DEPRESSION
     Dosage: 60 MG, QD
     Route: 048
     Dates: start: 20120712, end: 20130124
  2. ACETAMINOPHEN [Concomitant]
  3. CRESTOR [Concomitant]
     Dosage: 20 MG, UNKNOWN
  4. CLONIDINE HCL [Concomitant]
     Dosage: 0.1 MG, QD
  5. BUPROPION HCL [Concomitant]
     Dosage: 150 MG, UNKNOWN
  6. HYDROCODONE W/ACETAMINOPHEN [Concomitant]
  7. DIAZEPAM [Concomitant]
     Dosage: 5 MG, UNKNOWN
  8. ATENOLOL [Concomitant]
     Dosage: 50 MG, UNKNOWN
  9. LEVOTHYROXINE [Concomitant]
     Dosage: 75 UG, UNKNOWN
  10. FISH OIL [Concomitant]
     Dosage: 1000 MG, UNKNOWN
  11. ALLOPURINOL [Concomitant]
     Dosage: 100 MG, UNKNOWN
  12. ASPIRIN (E.C.) [Concomitant]
     Dosage: 81 MG, UNKNOWN
  13. DOXAZOSIN MESILATE [Concomitant]
     Dosage: 2 MG, UNKNOWN
  14. VITAMIN D [Concomitant]
     Dosage: 400 U, UNKNOWN
  15. VITAMIN C [Concomitant]
     Dosage: 500 MG, UNKNOWN
  16. LIDODERM [Concomitant]
     Dosage: 5 %, UNKNOWN
  17. CITALOPRAM [Concomitant]
     Dosage: 20 MG, UNKNOWN

REACTIONS (2)
  - Hepatic steatosis [Recovered/Resolved]
  - Hepatic enzyme increased [Recovered/Resolved]
